FAERS Safety Report 10657688 (Version 2)
Quarter: 2014Q4

REPORT INFORMATION
  Report Type: Spontaneous
  Country: US (occurrence: US)
  Receive Date: 20141217
  Receipt Date: 20141217
  Transmission Date: 20150529
  Serious: No
  Sender: FDA-Public Use
  Company Number: US-GLAXOSMITHKLINE-A1051154A

PATIENT

DRUGS (1)
  1. VOTRIENT [Suspect]
     Active Substance: PAZOPANIB HYDROCHLORIDE
     Indication: PRODUCT USED FOR UNKNOWN INDICATION
     Dosage: 800 MG DAILY
     Route: 048

REACTIONS (9)
  - Glossodynia [Unknown]
  - Pain [Unknown]
  - Liver function test abnormal [Unknown]
  - Nausea [Unknown]
  - Dyspnoea [Unknown]
  - Hypertension [Unknown]
  - Dysgeusia [Unknown]
  - Chest discomfort [Unknown]
  - Chest pain [Unknown]
